FAERS Safety Report 7271856-2 (Version None)
Quarter: 2011Q1

REPORT INFORMATION
  Report Type: 
  Country: None (occurrence: None)
  Receive Date: 20110203
  Receipt Date: 20110125
  Transmission Date: 20110831
  Serious: Yes (Other)
  Sender: FDA-Public Use
  Company Number: US-JNJFOC-20090402028

PATIENT
  Sex: Male
  Weight: 112.49 kg

DRUGS (8)
  1. CITALOPRAM HYDROBROMIDE [Concomitant]
     Route: 065
  2. RISPERDAL [Suspect]
     Indication: ANXIETY
     Route: 048
  3. DILANTIN [Concomitant]
     Route: 065
  4. GABAPENTIN [Concomitant]
     Route: 065
  5. SEROQUEL [Suspect]
     Indication: INSOMNIA
     Route: 065
  6. SEROQUEL [Suspect]
     Indication: BIPOLAR DISORDER
     Route: 065
  7. LITHIUM CARBONATE [Concomitant]
     Route: 065
  8. RISPERDAL [Suspect]
     Indication: BIPOLAR DISORDER
     Route: 048

REACTIONS (6)
  - DIABETIC RETINOPATHY [None]
  - INSULIN-REQUIRING TYPE 2 DIABETES MELLITUS [None]
  - DIABETIC NEUROPATHY [None]
  - WEIGHT DECREASED [None]
  - DRUG INEFFECTIVE [None]
  - ERECTILE DYSFUNCTION [None]
